FAERS Safety Report 6925034-4 (Version None)
Quarter: 2010Q3

REPORT INFORMATION
  Report Type: 
  Country: None (occurrence: None)
  Receive Date: 20100810
  Receipt Date: 20100727
  Transmission Date: 20110219
  Serious: Yes (Hospitalization)
  Sender: FDA-Public Use
  Company Number: 016239

PATIENT
  Sex: Female
  Weight: 106.6 kg

DRUGS (1)
  1. CIMZIA [Suspect]
     Indication: CROHN'S DISEASE
     Dosage: (400 MG 1X/MONTH SUBCUTANEOUS)
     Route: 058
     Dates: start: 20100401

REACTIONS (8)
  - ANAEMIA [None]
  - CHEST PAIN [None]
  - CROHN'S DISEASE [None]
  - DECREASED APPETITE [None]
  - DISEASE RECURRENCE [None]
  - FATIGUE [None]
  - OVARIAN CYST [None]
  - THROAT TIGHTNESS [None]
